FAERS Safety Report 10160065 (Version 1)
Quarter: 2014Q2

REPORT INFORMATION
  Report Type: Spontaneous
  Country: US (occurrence: None)
  Receive Date: 20140506
  Receipt Date: 20140506
  Transmission Date: 20141212
  Serious: Yes (Hospitalization)
  Sender: FDA-Public Use
  Company Number: SP07784

PATIENT
  Age: 15 Year
  Sex: Male

DRUGS (1)
  1. APRISO [Suspect]
     Indication: COLITIS ULCERATIVE
     Dosage: 4 DOSAGE FORMS (2 DOSAGE FORMS, 2 IN 1 D), ORAL
     Route: 048
     Dates: start: 201401, end: 201402

REACTIONS (7)
  - Dehydration [None]
  - Abdominal pain upper [None]
  - Nausea [None]
  - Vomiting [None]
  - Diarrhoea [None]
  - Haematochezia [None]
  - Eating disorder [None]
